FAERS Safety Report 24571564 (Version 1)
Quarter: 2024Q4

REPORT INFORMATION
  Report Type: Spontaneous
  Country: GB (occurrence: GB)
  Receive Date: 20241101
  Receipt Date: 20241101
  Transmission Date: 20250114
  Serious: Yes (Other)
  Sender: AUROBINDO
  Company Number: GB-MHRA-MED-202410181156291390-WLNQZ

PATIENT
  Age: 45 Year
  Sex: Female

DRUGS (1)
  1. ONDANSETRON [Suspect]
     Active Substance: ONDANSETRON
     Indication: Antiemetic supportive care
     Dosage: 4 MILLIGRAM, AS NECESSARY
     Route: 065
     Dates: start: 20241017, end: 20241018

REACTIONS (1)
  - Extrapyramidal disorder [Recovered/Resolved]
